FAERS Safety Report 6811195-4 (Version None)
Quarter: 2010Q2

REPORT INFORMATION
  Report Type: 
  Country: None (occurrence: None)
  Receive Date: 20100630
  Receipt Date: 20090818
  Transmission Date: 20101027
  Serious: No
  Sender: FDA-Public Use
  Company Number: US-AMGEN-KDL361073

PATIENT
  Sex: Female

DRUGS (2)
  1. PROCRIT [Suspect]
     Indication: ANAEMIA
     Route: 058
     Dates: start: 20090817
  2. METHOTREXATE [Concomitant]

REACTIONS (2)
  - ABDOMINAL PAIN LOWER [None]
  - GASTROINTESTINAL PAIN [None]
